FAERS Safety Report 10248962 (Version 1)
Quarter: 2014Q2

REPORT INFORMATION
  Report Type: Spontaneous
  Country: US (occurrence: None)
  Receive Date: 20140619
  Receipt Date: 20140619
  Transmission Date: 20141212
  Serious: Yes (Life-Threatening)
  Sender: FDA-Public Use
  Company Number: None

PATIENT
  Age: 57 Year
  Sex: Female
  Weight: 99.79 kg

DRUGS (1)
  1. GENTAMICIN [Suspect]
     Indication: KIDNEY INFECTION
     Dosage: ONE PACKAGE ONCE DAILY INTO A VEIN

REACTIONS (1)
  - Renal failure acute [None]
